FAERS Safety Report 12179842 (Version 2)
Quarter: 2016Q1

REPORT INFORMATION
  Report Type: Spontaneous
  Country: JP (occurrence: JP)
  Receive Date: 20160315
  Receipt Date: 20160330
  Transmission Date: 20160526
  Serious: Yes (Hospitalization)
  Sender: FDA-Public Use
  Company Number: JP-TAIHO ONCOLOGY INC-JPTT160185

PATIENT
  Age: 8 Decade
  Sex: Female

DRUGS (1)
  1. LONSURF [Suspect]
     Active Substance: TIPIRACIL HYDROCHLORIDE\TRIFLURIDINE
     Indication: COLORECTAL CANCER METASTATIC
     Dosage: DETAILS NOT REPORTED, 1 CYCLE
     Route: 048

REACTIONS (3)
  - Neuropathy peripheral [Unknown]
  - Musculoskeletal pain [Recovering/Resolving]
  - Stomatitis [Unknown]
